FAERS Safety Report 12921625 (Version 1)
Quarter: 2016Q4

REPORT INFORMATION
  Report Type: Report from Study
  Country: CA (occurrence: CA)
  Receive Date: 20161108
  Receipt Date: 20161108
  Transmission Date: 20170207
  Serious: Yes (Death)
  Sender: FDA-Public Use
  Company Number: CA-ASTELLAS-2016US044123

PATIENT

DRUGS (1)
  1. ERLOTINIB [Suspect]
     Active Substance: ERLOTINIB
     Indication: COLORECTAL CANCER METASTATIC
     Dosage: 150 MG, CONTINUOUSLY DAILY DOSE ON A 4 WEEKLY CYCLE
     Route: 048

REACTIONS (1)
  - Intestinal obstruction [Fatal]
